FAERS Safety Report 8257168-9 (Version None)
Quarter: 2012Q1

REPORT INFORMATION
  Report Type: 
  Country: None (occurrence: None)
  Receive Date: 20120322
  Receipt Date: 20120217
  Transmission Date: 20120608
  Serious: Yes (Hospitalization)
  Sender: FDA-Public Use
  Company Number: UTC-015761

PATIENT
  Age: 68 Year
  Sex: Male

DRUGS (1)
  1. TYVASO [Suspect]
     Indication: PULMONARY ARTERIAL HYPERTENSION
     Dosage: 168 MCG (42 MCG, 4 IN 1 D), INHALATION
     Route: 055
     Dates: start: 20110618

REACTIONS (2)
  - DYSPNOEA [None]
  - PAINFUL RESPIRATION [None]
